FAERS Safety Report 11752911 (Version 2)
Quarter: 2015Q4

REPORT INFORMATION
  Report Type: Spontaneous
  Country: US (occurrence: US)
  Receive Date: 20151119
  Receipt Date: 20151215
  Transmission Date: 20160304
  Serious: Yes (Hospitalization)
  Sender: FDA-Public Use
  Company Number: US-BEH-2015055841

PATIENT
  Sex: Female
  Weight: 51 kg

DRUGS (17)
  1. EPIPEN [Concomitant]
     Active Substance: EPINEPHRINE
  2. ECOTRIN [Concomitant]
     Active Substance: ASPIRIN
  3. ZEMAIRA [Suspect]
     Active Substance: .ALPHA.1-PROTEINASE INHIBITOR HUMAN
     Indication: ALPHA-1 ANTI-TRYPSIN DEFICIENCY
     Dosage: 970 MG/VL
     Route: 042
  4. DIGOXIN. [Concomitant]
     Active Substance: DIGOXIN
  5. ZOCOR [Concomitant]
     Active Substance: SIMVASTATIN
  6. NEXIUM [Concomitant]
     Active Substance: ESOMEPRAZOLE MAGNESIUM
  7. TOPROL XL [Concomitant]
     Active Substance: METOPROLOL SUCCINATE
  8. POLYVINYL ALCOHOL [Concomitant]
     Active Substance: POLYVINYL ALCOHOL
  9. VENTOLIN [Concomitant]
     Active Substance: ALBUTEROL SULFATE
  10. LASIX [Concomitant]
     Active Substance: FUROSEMIDE
  11. RAMIPRIL. [Concomitant]
     Active Substance: RAMIPRIL
  12. PATADAY [Concomitant]
     Active Substance: OLOPATADINE HYDROCHLORIDE
  13. SPIRIVA [Concomitant]
     Active Substance: TIOTROPIUM BROMIDE MONOHYDRATE
  14. FOSAMAX [Concomitant]
     Active Substance: ALENDRONATE SODIUM
  15. SODIUM CHLORIDE. [Concomitant]
     Active Substance: SODIUM CHLORIDE
  16. OXYGEN. [Concomitant]
     Active Substance: OXYGEN
  17. DIPHENHYDRAMINE. [Concomitant]
     Active Substance: DIPHENHYDRAMINE

REACTIONS (1)
  - Cardiac resynchronisation therapy [Unknown]
